FAERS Safety Report 17391526 (Version 3)
Quarter: 2021Q1

REPORT INFORMATION
  Report Type: Spontaneous
  Country: ES (occurrence: ES)
  Receive Date: 20200207
  Receipt Date: 20210210
  Transmission Date: 20210419
  Serious: Yes (Hospitalization, Other)
  Sender: FDA-Public Use
  Company Number: ES-CELLTRION INC.-2020ES018436

PATIENT

DRUGS (5)
  1. INFLIXIMAB (UNKNOWN) [Suspect]
     Active Substance: INFLIXIMAB
     Indication: CROHN^S DISEASE
     Dosage: 5 MG/KG, 8 WEEKS (ESTABLISHED/ SCHEDULED FOR 5 MONTHS)
     Route: 065
  2. METHOTREXATE. [Concomitant]
     Active Substance: METHOTREXATE
     Indication: CROHN^S DISEASE
     Dosage: UNK (ESTABLISHED FOR 5 MONTHS)
     Route: 065
  3. CEFOTAXIME [Concomitant]
     Active Substance: CEFOTAXIME SODIUM
     Indication: PRODUCT USED FOR UNKNOWN INDICATION
     Dosage: 2 G, Q8H
     Route: 065
  4. METHOTREXATE. [Concomitant]
     Active Substance: METHOTREXATE
     Indication: IMMUNOSUPPRESSANT DRUG THERAPY
  5. INFLIXIMAB (UNKNOWN) [Suspect]
     Active Substance: INFLIXIMAB
     Indication: IMMUNOSUPPRESSANT DRUG THERAPY

REACTIONS (2)
  - Cholecystitis acute [Unknown]
  - Liver abscess [Recovered/Resolved]
